FAERS Safety Report 14582214 (Version 7)
Quarter: 2020Q4

REPORT INFORMATION
  Report Type: Spontaneous
  Country: US (occurrence: US)
  Receive Date: 20180228
  Receipt Date: 20201009
  Transmission Date: 20210113
  Serious: Yes (Other)
  Sender: FDA-Public Use
  Company Number: US-SA-2018SA013762

PATIENT

DRUGS (2)
  1. DULCOLAX (BISACODYL) [Suspect]
     Active Substance: BISACODYL
     Indication: CONSTIPATION
     Dosage: 3 DF, QW
  2. DULCOLAX (BISACODYL) [Concomitant]
     Active Substance: BISACODYL

REACTIONS (11)
  - Back pain [Unknown]
  - Hypokinesia [Unknown]
  - Faeces hard [Unknown]
  - Feeling abnormal [Unknown]
  - Vertigo [Unknown]
  - Hernia [Unknown]
  - Drug ineffective [Unknown]
  - Abdominal pain [Unknown]
  - Therapeutic response delayed [Unknown]
  - Muscle spasms [Unknown]
  - Pain [Unknown]
